FAERS Safety Report 7442981-8 (Version None)
Quarter: 2011Q2

REPORT INFORMATION
  Report Type: 
  Country: None (occurrence: None)
  Receive Date: 20110419
  Receipt Date: 20110405
  Transmission Date: 20111010
  Serious: Yes (Hospitalization)
  Sender: FDA-Public Use
  Company Number: 027929

PATIENT
  Sex: Male

DRUGS (10)
  1. ALCENOL [Concomitant]
  2. TEGRETOL [Concomitant]
  3. LAMICTAL [Concomitant]
  4. SIOPELMIN [Concomitant]
  5. KEPPRA [Suspect]
     Indication: EPILEPSY
     Dosage: 250 MG BID ORAL; 250 MG BID ORAL; 250 MG QD, IN THE EVENING ORAL; 250 MG QD ORAL
     Route: 048
     Dates: start: 20100925, end: 20100927
  6. KEPPRA [Suspect]
     Indication: EPILEPSY
     Dosage: 250 MG BID ORAL; 250 MG BID ORAL; 250 MG QD, IN THE EVENING ORAL; 250 MG QD ORAL
     Route: 048
     Dates: start: 20101003, end: 20101007
  7. KEPPRA [Suspect]
     Indication: EPILEPSY
     Dosage: 250 MG BID ORAL; 250 MG BID ORAL; 250 MG QD, IN THE EVENING ORAL; 250 MG QD ORAL
     Route: 048
     Dates: start: 20101103, end: 20101111
  8. KEPPRA [Suspect]
     Indication: EPILEPSY
     Dosage: 250 MG BID ORAL; 250 MG BID ORAL; 250 MG QD, IN THE EVENING ORAL; 250 MG QD ORAL
     Route: 048
     Dates: start: 20101023, end: 20101030
  9. PURSENNID [Concomitant]
  10. ABILIFY [Concomitant]

REACTIONS (16)
  - SOMNOLENCE [None]
  - NASAL CONGESTION [None]
  - DECREASED APPETITE [None]
  - INSOMNIA [None]
  - MEMORY IMPAIRMENT [None]
  - PSYCHOTIC DISORDER [None]
  - ALTERED STATE OF CONSCIOUSNESS [None]
  - INCOHERENT [None]
  - NAUSEA [None]
  - VOMITING [None]
  - PERSECUTORY DELUSION [None]
  - COUGH [None]
  - CONSTIPATION [None]
  - THOUGHT BLOCKING [None]
  - GRAND MAL CONVULSION [None]
  - FEELING ABNORMAL [None]
